FAERS Safety Report 24763213 (Version 1)
Quarter: 2024Q4

REPORT INFORMATION
  Report Type: Spontaneous
  Country: US (occurrence: US)
  Receive Date: 20241222
  Receipt Date: 20241222
  Transmission Date: 20250115
  Serious: No
  Sender: BAUSCH AND LOMB
  Company Number: US-BAUSCHBL-2024BNL038781

PATIENT
  Sex: Female

DRUGS (1)
  1. MIEBO [Suspect]
     Active Substance: PERFLUOROHEXYLOCTANE
     Indication: Product used for unknown indication
     Dosage: SHE HAS BEEN USING MIEBO FOR ABOUT A WEEK.
     Route: 047

REACTIONS (4)
  - Eye pain [Unknown]
  - Patient dissatisfaction with treatment [Unknown]
  - Product prescribing error [Unknown]
  - Product complaint [Unknown]
